APPROVED DRUG PRODUCT: DURACLON
Active Ingredient: CLONIDINE HYDROCHLORIDE
Strength: 1MG/10ML (0.1MG/ML)
Dosage Form/Route: INJECTABLE;INJECTION
Application: N020615 | Product #001 | TE Code: AP
Applicant: MYLAN INSTITUTIONAL LLC
Approved: Oct 2, 1996 | RLD: Yes | RS: No | Type: RX